FAERS Safety Report 21018814 (Version 1)
Quarter: 2022Q3

REPORT INFORMATION
  Report Type: Spontaneous
  Country: IL (occurrence: IL)
  Receive Date: 20220628
  Receipt Date: 20220628
  Transmission Date: 20221027
  Serious: Yes (Other)
  Sender: FDA-Public Use
  Company Number: IL-NOVARTISPH-NVSC2022IL145094

PATIENT
  Age: 65 Year

DRUGS (4)
  1. CYTARABINE [Suspect]
     Active Substance: CYTARABINE
     Indication: Acute myeloid leukaemia refractory
     Dosage: 2000 MG/M2, QD (RANGE 500-2000, MEDIAN VALUE 1500 MG/M2)
     Route: 065
  2. FLUDARABINE PHOSPHATE [Suspect]
     Active Substance: FLUDARABINE PHOSPHATE
     Indication: Acute myeloid leukaemia refractory
     Dosage: 30 MG/M2, QD RANGE 20-30)
     Route: 065
  3. IDARUBICIN [Suspect]
     Active Substance: IDARUBICIN
     Indication: Acute myeloid leukaemia refractory
     Dosage: 10 MG/M2, QD (RANGE 6-10, MEDIAN VALUE 6 MG/M2
     Route: 065
  4. VENETOCLAX [Suspect]
     Active Substance: VENETOCLAX
     Indication: Acute myeloid leukaemia refractory
     Dosage: UNK
     Route: 065

REACTIONS (2)
  - Bronchopulmonary aspergillosis [Recovered/Resolved]
  - Product use in unapproved indication [Unknown]
